FAERS Safety Report 5614277-8 (Version None)
Quarter: 2008Q1

REPORT INFORMATION
  Report Type: 
  Country: None (occurrence: None)
  Receive Date: 20080205
  Receipt Date: 20080130
  Transmission Date: 20080703
  Serious: Yes (Disabling, Other)
  Sender: FDA-Public Use
  Company Number: FR-PFIZER INC-2007096225

PATIENT
  Sex: Male
  Weight: 90 kg

DRUGS (13)
  1. TAHOR [Suspect]
     Indication: BLOOD CHOLESTEROL
     Route: 048
     Dates: start: 20020101, end: 20071107
  2. NEXIUM [Concomitant]
     Route: 048
  3. EZETROL [Concomitant]
     Dosage: DAILY DOSE:10MG-FREQ:DAILY
     Route: 048
  4. LASILIX [Concomitant]
     Dosage: DAILY DOSE:500MG-FREQ:DAILY
     Route: 048
  5. ALLOPURINOL [Concomitant]
     Dosage: DAILY DOSE:100MG-FREQ:DAILY
     Route: 048
  6. LOSARTAN POTASSIUM [Concomitant]
     Dosage: DAILY DOSE:50MG-FREQ:DAILY
     Route: 048
  7. FELODIPINE [Concomitant]
     Dosage: DAILY DOSE:5MG-FREQ:DAILY
     Route: 048
  8. GAVISCON [Concomitant]
     Dosage: FREQ:OCCASIONALLY
     Route: 048
  9. LACTULOSE [Concomitant]
     Dosage: DAILY DOSE:10MG-FREQ:TWICE A WEEK
     Route: 048
  10. NOVORAPID [Concomitant]
     Dosage: DAILY DOSE:60I.U.-FREQ:3 INTAKES A DAY
     Route: 058
  11. INSULIN GLARGINE [Concomitant]
     Dosage: DAILY DOSE:34I.U.-FREQ:DAILY
     Route: 058
  12. ESIDRIX [Concomitant]
     Route: 048
  13. PLAVIX [Concomitant]
     Dosage: DAILY DOSE:75MG-FREQ:DAILY
     Route: 048

REACTIONS (7)
  - ABASIA [None]
  - ABDOMINAL PAIN UPPER [None]
  - BLOOD CREATINE PHOSPHOKINASE INCREASED [None]
  - MUSCLE SPASMS [None]
  - OEDEMA PERIPHERAL [None]
  - TRANSAMINASES INCREASED [None]
  - VISUAL ACUITY REDUCED [None]
